FAERS Safety Report 6286560-7 (Version None)
Quarter: 2009Q3

REPORT INFORMATION
  Report Type: 
  Country: None (occurrence: None)
  Receive Date: 20090728
  Receipt Date: 20090331
  Transmission Date: 20100115
  Serious: Yes (Hospitalization)
  Sender: FDA-Public Use
  Company Number: PHHY2009DE04921

PATIENT
  Sex: Male

DRUGS (2)
  1. CERTICAN [Suspect]
     Indication: HEART TRANSPLANT
     Dosage: 4.5 MG, BID
     Route: 048
     Dates: start: 20080201
  2. CELLCEPT [Concomitant]
     Indication: HEART TRANSPLANT
     Dosage: 500 MG, BID
     Route: 048

REACTIONS (5)
  - ABNORMAL FAECES [None]
  - DRUG LEVEL DECREASED [None]
  - IMPAIRED HEALING [None]
  - INTESTINAL OPERATION [None]
  - MALABSORPTION [None]
